FAERS Safety Report 6280274-5 (Version None)
Quarter: 2009Q3

REPORT INFORMATION
  Report Type: 
  Country: None (occurrence: None)
  Receive Date: 20090723
  Receipt Date: 20090715
  Transmission Date: 20100115
  Serious: Yes (Hospitalization, Other)
  Sender: FDA-Public Use
  Company Number: BR-ASTRAZENECA-2009UW09044

PATIENT
  Age: 33 Year
  Sex: Female
  Weight: 80 kg

DRUGS (4)
  1. SYMBICORT [Suspect]
     Indication: ASTHMA
     Dosage: 12/400 MCG
     Route: 055
     Dates: start: 20090301, end: 20090401
  2. ANTIBIOTIC [Suspect]
     Indication: PYELONEPHRITIS
     Route: 042
     Dates: start: 20090501
  3. ACETAMINOPHEN [Concomitant]
     Indication: BACK PAIN
     Route: 048
     Dates: start: 20090501
  4. CLENIL COMPOSITUM [Concomitant]
     Indication: ASTHMA
     Route: 055

REACTIONS (4)
  - ABORTION SPONTANEOUS [None]
  - BACK PAIN [None]
  - PYELONEPHRITIS [None]
  - SOMNOLENCE [None]
